FAERS Safety Report 8499526-3 (Version None)
Quarter: 2012Q3

REPORT INFORMATION
  Report Type: 
  Country: None (occurrence: None)
  Receive Date: 20120710
  Receipt Date: 20120627
  Transmission Date: 20120928
  Serious: Yes (Other)
  Sender: FDA-Public Use
  Company Number: RS-COVIDIEN/TYCO HEALTHCARE/MALLINCKRODT-T201202746

PATIENT
  Sex: Male

DRUGS (3)
  1. TRODON                             /00599201/ [Concomitant]
     Indication: PAIN
     Dosage: 100 MG, TID
     Dates: end: 20120418
  2. DICLOPHENAC [Concomitant]
     Indication: PAIN
     Dosage: ONCE PER DAY
     Dates: end: 20120418
  3. EXALGO [Suspect]
     Indication: PAIN
     Dosage: 16 MG, UNK
     Dates: start: 20120418

REACTIONS (4)
  - DYSPNOEA [None]
  - SOMNOLENCE [None]
  - URTICARIA [None]
  - NAUSEA [None]
